FAERS Safety Report 6673693-6 (Version None)
Quarter: 2010Q1

REPORT INFORMATION
  Report Type: 
  Country: None (occurrence: None)
  Receive Date: 20100329
  Receipt Date: 20090915
  Transmission Date: 20100710
  Serious: Yes (Other)
  Sender: FDA-Public Use
  Company Number: 2009235037

PATIENT
  Age: 18 Year
  Sex: Female

DRUGS (4)
  1. GEODON [Suspect]
     Dates: start: 20090527
  2. LAMICTAL [Concomitant]
  3. NEURONTIN [Concomitant]
  4. AMBIEN [Concomitant]

REACTIONS (3)
  - INSOMNIA [None]
  - IRRITABILITY [None]
  - MANIA [None]
